FAERS Safety Report 25734034 (Version 2)
Quarter: 2025Q3

REPORT INFORMATION
  Report Type: Report from Study
  Country: US (occurrence: US)
  Receive Date: 20250828
  Receipt Date: 20250926
  Transmission Date: 20251021
  Serious: Yes (Hospitalization, Other)
  Sender: ACADIA PHARMACEUTICALS
  Company Number: US-ACADIA PHARMACEUTICALS INC.-ACA-2025-PIM-009556

PATIENT
  Sex: Male

DRUGS (11)
  1. NUPLAZID [Suspect]
     Active Substance: PIMAVANSERIN TARTRATE
     Indication: Parkinson^s disease
     Dosage: 34 MILLIGRAM, QD
     Route: 048
     Dates: start: 20250305
  2. VITAMINS [Concomitant]
     Active Substance: VITAMINS
  3. VITAMIN B1 [Concomitant]
     Active Substance: THIAMINE HYDROCHLORIDE
  4. VITAMIN K2 + D3 [COLECALCIFEROL;MENAQUINONE] [Concomitant]
  5. PROBIOTIC 4 [Concomitant]
  6. MIDODRINE [Concomitant]
     Active Substance: MIDODRINE
  7. ASPIRIN [Concomitant]
     Active Substance: ASPIRIN
  8. LACTOBACILLUS ACIDOPHILUS [Concomitant]
     Active Substance: LACTOBACILLUS ACIDOPHILUS
  9. LEVOFLOXACIN [Concomitant]
     Active Substance: LEVOFLOXACIN
  10. XDEMVY [Concomitant]
     Active Substance: LOTILANER
  11. NEOMYCIN/POLYMYXIN/HYDROCORTISONE AIDAREX [Concomitant]
     Route: 047

REACTIONS (5)
  - Urinary tract infection [Not Recovered/Not Resolved]
  - Cerebral atrophy [Unknown]
  - Hallucination [Unknown]
  - Hypotension [Unknown]
  - Constipation [Not Recovered/Not Resolved]
